FAERS Safety Report 4967111-3 (Version None)
Quarter: 2006Q2

REPORT INFORMATION
  Report Type: 
  Country: None (occurrence: None)
  Receive Date: 20060403
  Receipt Date: 20060328
  Transmission Date: 20061013
  Serious: Yes (Other)
  Sender: FDA-Public Use
  Company Number: 2006023978

PATIENT
  Age: 35 Year
  Sex: Male

DRUGS (9)
  1. NEURONTIN [Suspect]
     Indication: ILL-DEFINED DISORDER
     Dosage: (300 MG), ORAL
     Route: 048
     Dates: start: 20060124, end: 20060203
  2. ACETAMINOPHEN [Concomitant]
  3. CLONAZEPAM [Concomitant]
  4. AMITRIPTYLINE (AMITRIPTYLINE) [Concomitant]
  5. FLUTICASONE PROPIONATE [Concomitant]
  6. VENTOLIN [Concomitant]
  7. HYTRIN [Concomitant]
  8. DHC CONTINUS (DIHYDROCODEINE BITARTRATE) [Concomitant]
  9. TRAMADOL HCL [Concomitant]

REACTIONS (3)
  - DRY EYE [None]
  - EYE IRRITATION [None]
  - EYE PAIN [None]
